FAERS Safety Report 7173248-3 (Version None)
Quarter: 2010Q4

REPORT INFORMATION
  Report Type: 
  Country: None (occurrence: None)
  Receive Date: 20101219
  Receipt Date: 20100223
  Transmission Date: 20110411
  Serious: No
  Sender: FDA-Public Use
  Company Number: US-AMGEN-KDL394489

PATIENT

DRUGS (10)
  1. ENBREL [Suspect]
     Indication: PRODUCT USED FOR UNKNOWN INDICATION
     Dosage: 25 MG, QWK
     Route: 058
  2. IBUPROFEN [Concomitant]
  3. PANTOPRAZOLE SODIUM [Concomitant]
     Dosage: 20 MG, UNK
  4. ZOLPIDEM [Concomitant]
     Dosage: 5 MG, UNK
  5. PREDNISONE [Concomitant]
     Dosage: 1 MG, UNK
  6. TOCOPHEROL CONCENTRATE CAP [Concomitant]
     Dosage: 400 IU, UNK
  7. ASCORBIC ACID [Concomitant]
     Dosage: 100 MG, UNK
  8. MULTI-VITAMINS [Concomitant]
     Dosage: UNK UNK, UNK
  9. ERGOCALCIFEROL [Concomitant]
     Dosage: 400 IU, UNK
  10. FISH OIL [Concomitant]
     Dosage: UNK UNK, UNK

REACTIONS (1)
  - CONJUNCTIVITIS [None]
